FAERS Safety Report 5361142-X (Version None)
Quarter: 2007Q2

REPORT INFORMATION
  Report Type: 
  Country: None (occurrence: None)
  Receive Date: 20070614
  Receipt Date: 20070513
  Transmission Date: 20071010
  Serious: Yes (Other)
  Sender: FDA-Public Use
  Company Number: 2007323812

PATIENT
  Sex: Female

DRUGS (1)
  1. VISINE EYE DROPS [Suspect]
     Dosage: 2 IN 1 D, OPHTHALMIC
     Route: 047
     Dates: start: 20070512

REACTIONS (2)
  - ALCOHOL USE [None]
  - LOSS OF CONSCIOUSNESS [None]
